FAERS Safety Report 25279223 (Version 1)
Quarter: 2025Q2

REPORT INFORMATION
  Report Type: Spontaneous
  Country: US (occurrence: None)
  Receive Date: 20250507
  Receipt Date: 20250507
  Transmission Date: 20250716
  Serious: Yes (Hospitalization)
  Sender: FDA-CTU
  Company Number: None

PATIENT
  Age: 75 Year
  Sex: Female

DRUGS (1)
  1. ACTEMRA [Suspect]
     Active Substance: TOCILIZUMAB
     Dosage: FREQUENCY : WEEKLY;?

REACTIONS (4)
  - Hip arthroplasty [None]
  - Sepsis [None]
  - Intentional dose omission [None]
  - Product substitution [None]
